FAERS Safety Report 4425198-0 (Version None)
Quarter: 2004Q3

REPORT INFORMATION
  Report Type: 
  Country: None (occurrence: None)
  Receive Date: 20040719
  Receipt Date: 20030306
  Transmission Date: 20050211
  Serious: Yes (Hospitalization)
  Sender: FDA-Public Use
  Company Number: 170510

PATIENT
  Age: 53 Year
  Sex: Female
  Weight: 49.8957 kg

DRUGS (2)
  1. AVONEX [Suspect]
     Indication: MULTIPLE SCLEROSIS
     Dosage: 30 MCG QW IM
     Route: 030
     Dates: start: 19970101
  2. PREMARIN [Concomitant]

REACTIONS (7)
  - BLISTER [None]
  - DECUBITUS ULCER [None]
  - FATIGUE [None]
  - INFECTED SKIN ULCER [None]
  - IRON DEFICIENCY ANAEMIA [None]
  - MUSCLE SPASMS [None]
  - URINARY INCONTINENCE [None]
